FAERS Safety Report 19945641 (Version 3)
Quarter: 2021Q4

REPORT INFORMATION
  Report Type: Spontaneous
  Country: NZ (occurrence: NZ)
  Receive Date: 20211012
  Receipt Date: 20211022
  Transmission Date: 20220303
  Serious: Yes (Other)
  Sender: FDA-Public Use
  Company Number: NZ-MYLANLABS-2021M1070757

PATIENT
  Age: 23 Year
  Sex: Male

DRUGS (1)
  1. CLOZARIL [Suspect]
     Active Substance: CLOZAPINE
     Indication: Schizophrenia
     Dosage: UNK
     Route: 048
     Dates: start: 20180709, end: 20210927

REACTIONS (10)
  - Chronic myeloid leukaemia [Unknown]
  - Red cell distribution width increased [Recovering/Resolving]
  - Platelet count increased [Not Recovered/Not Resolved]
  - White blood cell count increased [Recovering/Resolving]
  - Immature granulocyte count increased [Recovering/Resolving]
  - Neutrophil count increased [Recovering/Resolving]
  - Lymphocytosis [Recovering/Resolving]
  - Monocyte count increased [Not Recovered/Not Resolved]
  - Mean cell haemoglobin decreased [Not Recovered/Not Resolved]
  - Treatment noncompliance [Unknown]

NARRATIVE: CASE EVENT DATE: 20181009
